FAERS Safety Report 6079075-2 (Version None)
Quarter: 2009Q1

REPORT INFORMATION
  Report Type: 
  Country: None (occurrence: None)
  Receive Date: 20090216
  Receipt Date: 20090127
  Transmission Date: 20090719
  Serious: Yes (Death)
  Sender: FDA-Public Use
  Company Number: US-ROCHE-613744

PATIENT
  Age: 54 Year
  Sex: Male

DRUGS (2)
  1. PEG-INTERFERON ALFA 2A (RO 25-8310) [Suspect]
     Route: 058
     Dates: start: 20050322, end: 20051004
  2. RIBAVIRIN [Suspect]
     Dosage: RECEIVED 400 MG IN THE MORNING AND 600 MG IN THE EVENING
     Route: 048
     Dates: start: 20050322, end: 20051004

REACTIONS (1)
  - DEATH [None]
